FAERS Safety Report 5056281-7 (Version None)
Quarter: 2006Q3

REPORT INFORMATION
  Report Type: 
  Country: None (occurrence: None)
  Receive Date: 20060720
  Receipt Date: 20060306
  Transmission Date: 20061208
  Serious: Yes (Other)
  Sender: FDA-Public Use
  Company Number: FR-AVENTIS-200610884FR

PATIENT
  Age: 77 Year
  Sex: Female
  Weight: 60 kg

DRUGS (9)
  1. FLAGYL [Suspect]
     Indication: PROPHYLAXIS
     Route: 067
     Dates: start: 20060228, end: 20060305
  2. ALDACTONE [Concomitant]
     Indication: HYPERTENSION
  3. ENALAPRIL MALEATE AND HYDROCHLOROTHIAZIDE [Concomitant]
     Indication: HYPERTENSION
  4. GINGKO FORT [Concomitant]
  5. ZOCOR [Concomitant]
     Indication: HYPERCHOLESTEROLAEMIA
     Route: 048
  6. MOTILIUM [Concomitant]
  7. FLECAINIDE ACETATE [Concomitant]
     Indication: TACHYCARDIA
     Route: 048
  8. PRAXILENE [Concomitant]
     Indication: ARTERITIS
     Route: 048
  9. HORMONES AND RELATED AGENTS [Concomitant]
     Route: 062

REACTIONS (3)
  - NERVOUS SYSTEM DISORDER [None]
  - RESTLESSNESS [None]
  - SCIATICA [None]
